FAERS Safety Report 16766155 (Version 2)
Quarter: 2019Q3

REPORT INFORMATION
  Report Type: Report from Study
  Country: US (occurrence: US)
  Receive Date: 20190903
  Receipt Date: 20190915
  Transmission Date: 20191005
  Serious: Yes (Hospitalization, Other)
  Sender: FDA-Public Use
  Company Number: PHEH2019US035667

PATIENT
  Age: 34 Year
  Sex: Male

DRUGS (2)
  1. GILENYA [Suspect]
     Active Substance: FINGOLIMOD HYDROCHLORIDE
     Indication: MULTIPLE SCLEROSIS
     Dosage: 0.5 MG, QD
     Route: 048
     Dates: start: 20190826, end: 20190827
  2. AMANTADINE. [Concomitant]
     Active Substance: AMANTADINE HYDROCHLORIDE
     Indication: OPTIC NEURITIS
     Dosage: 100 MG, BID
     Route: 065

REACTIONS (4)
  - Electrocardiogram QT prolonged [Unknown]
  - Ventricular extrasystoles [Unknown]
  - Blood pressure decreased [Unknown]
  - Conduction disorder [Unknown]

NARRATIVE: CASE EVENT DATE: 20190826
